FAERS Safety Report 10162451 (Version 2)
Quarter: 2014Q2

REPORT INFORMATION
  Report Type: Spontaneous
  Country: GB (occurrence: GB)
  Receive Date: 20140509
  Receipt Date: 20140528
  Transmission Date: 20141212
  Serious: Yes (Other)
  Sender: FDA-Public Use
  Company Number: GB-009507513-1405GBR000894

PATIENT
  Age: 26 Year
  Sex: Female

DRUGS (5)
  1. NEXPLANON [Suspect]
     Indication: CONTRACEPTION
     Dosage: UNK
     Route: 058
     Dates: start: 20121009, end: 20140430
  2. DICLOFENAC [Concomitant]
     Indication: SCIATICA
     Dosage: 50 MG,TDS PRN
     Route: 048
     Dates: start: 20130305, end: 20130819
  3. AMITRIPTYLINE HYDROCHLORIDE [Concomitant]
     Dosage: 10 MG, QPM
     Route: 048
     Dates: start: 20130910, end: 20140422
  4. CO-CODAMOL EFF [Concomitant]
     Indication: BACK PAIN
     Dosage: 30/500 MG, QDS, PRN
     Route: 048
     Dates: start: 20121108, end: 20130205
  5. TRAMADOL HYDROCHLORIDE [Concomitant]
     Indication: SCIATICA
     Dosage: 50 MG,  QDS PRN
     Route: 048
     Dates: start: 20130305, end: 20130819

REACTIONS (4)
  - Abortion spontaneous [Unknown]
  - Haemorrhage [Unknown]
  - Unintended pregnancy [Recovered/Resolved]
  - Amenorrhoea [Unknown]
